FAERS Safety Report 5404641-4 (Version None)
Quarter: 2007Q3

REPORT INFORMATION
  Report Type: 
  Country: None (occurrence: None)
  Receive Date: 20070802
  Receipt Date: 20070726
  Transmission Date: 20080115
  Serious: Yes (Disabling)
  Sender: FDA-Public Use
  Company Number: GB-MERCK-0707GBR00120

PATIENT
  Age: 84 Year
  Sex: Female
  Weight: 53 kg

DRUGS (6)
  1. COZAAR [Suspect]
     Indication: HYPERTENSION
     Route: 048
     Dates: start: 20061107, end: 20070704
  2. ALVERINE CITRATE [Concomitant]
     Indication: DIVERTICULUM
     Route: 048
     Dates: start: 20010108
  3. ASPIRIN [Concomitant]
     Indication: CARDIOVASCULAR DISORDER
     Route: 048
     Dates: start: 20061017
  4. ATENOLOL [Concomitant]
     Route: 048
     Dates: start: 20021120
  5. DIPYRIDAMOLE [Concomitant]
     Indication: CARDIOVASCULAR DISORDER
     Route: 048
     Dates: start: 20061107
  6. SIMVASTATIN [Concomitant]
     Indication: CARDIOVASCULAR DISORDER
     Route: 048
     Dates: start: 20061027

REACTIONS (2)
  - HYPONATRAEMIA [None]
  - MALAISE [None]
